FAERS Safety Report 7765116-0 (Version None)
Quarter: 2011Q3

REPORT INFORMATION
  Report Type: 
  Country: None (occurrence: None)
  Receive Date: 20110830
  Receipt Date: 20110608
  Transmission Date: 20111222
  Serious: No
  Sender: FDA-Public Use
  Company Number: 11-0559

PATIENT
  Age: 62 Year
  Sex: Female

DRUGS (3)
  1. SYNTHROID [Concomitant]
  2. RESTASIS [Concomitant]
  3. XEOMIN [Suspect]
     Indication: BLEPHAROSPASM
     Dosage: (52 IU, 1N 1 TOTAL),INTRAMUSCULAR
     Route: 030
     Dates: start: 20110516, end: 20110516

REACTIONS (6)
  - STRABISMUS [None]
  - VISION BLURRED [None]
  - DRY EYE [None]
  - MYOPIA [None]
  - DIPLOPIA [None]
  - DRUG INEFFECTIVE [None]
